FAERS Safety Report 5178614-3 (Version None)
Quarter: 2006Q4

REPORT INFORMATION
  Report Type: 
  Country: None (occurrence: None)
  Receive Date: 20061218
  Receipt Date: 20060815
  Transmission Date: 20070319
  Serious: No
  Sender: FDA-Public Use
  Company Number: US-AMGEN-KDL190167

PATIENT
  Sex: Female

DRUGS (1)
  1. ENBREL [Suspect]
     Indication: RHEUMATOID ARTHRITIS
     Route: 058
     Dates: start: 20060727

REACTIONS (8)
  - ALOPECIA [None]
  - DIZZINESS [None]
  - DYSPNOEA [None]
  - INJECTION SITE SWELLING [None]
  - MIGRAINE [None]
  - NAUSEA [None]
  - PHARYNGITIS [None]
  - SINUSITIS [None]
